FAERS Safety Report 9338307 (Version 3)
Quarter: 2014Q1

REPORT INFORMATION
  Report Type: Spontaneous
  Country: US (occurrence: US)
  Receive Date: 20130610
  Receipt Date: 20140117
  Transmission Date: 20141002
  Serious: No
  Sender: FDA-Public Use
  Company Number: US-PFIZER INC-2013171687

PATIENT
  Age: 65 Year
  Sex: Female

DRUGS (3)
  1. SUTENT [Suspect]
     Indication: MALIGNANT URINARY TRACT NEOPLASM
     Dosage: 25 MG, CYCLIC (3 WEEKS ON/ 2 WEEKS OFF)
     Route: 048
     Dates: start: 20130208, end: 20131003
  2. CYCLOBENZAPRINE [Concomitant]
     Dosage: UNK
  3. FLEXERIL [Concomitant]
     Dosage: UNK

REACTIONS (6)
  - Mouth ulceration [Unknown]
  - Dysgeusia [Unknown]
  - Rhinitis [Unknown]
  - Myalgia [Not Recovered/Not Resolved]
  - Epistaxis [Not Recovered/Not Resolved]
  - Muscle spasms [Unknown]
